FAERS Safety Report 10788909 (Version 1)
Quarter: 2015Q1

REPORT INFORMATION
  Report Type: Spontaneous
  Country: US (occurrence: US)
  Receive Date: 20150212
  Receipt Date: 20150212
  Transmission Date: 20150721
  Serious: Yes (Hospitalization)
  Sender: FDA-Public Use
  Company Number: US-SA-2015SA016623

PATIENT
  Sex: Female

DRUGS (1)
  1. KYNAMRO [Suspect]
     Active Substance: MIPOMERSEN SODIUM
     Indication: HYPERCHOLESTEROLAEMIA
     Route: 058
     Dates: start: 20141016, end: 20150109

REACTIONS (7)
  - Dizziness [Unknown]
  - Myalgia [Unknown]
  - Rash [Unknown]
  - Nausea [Unknown]
  - Constipation [Unknown]
  - Injection site pain [Unknown]
  - Pyrexia [Unknown]
